FAERS Safety Report 5715979-5 (Version None)
Quarter: 2008Q2

REPORT INFORMATION
  Report Type: 
  Country: None (occurrence: None)
  Receive Date: 20080424
  Receipt Date: 20080415
  Transmission Date: 20081010
  Serious: Yes (Other)
  Sender: FDA-Public Use
  Company Number: GB-ELI_LILLY_AND_COMPANY-GB200804003672

PATIENT
  Sex: Female

DRUGS (1)
  1. FORTEO [Suspect]
     Indication: OSTEOPOROSIS
     Dosage: 20 UG, DAILY (1/D)
     Route: 058
     Dates: start: 20080409, end: 20080411

REACTIONS (5)
  - BONE PAIN [None]
  - CHEST DISCOMFORT [None]
  - CHILLS [None]
  - COORDINATION ABNORMAL [None]
  - HEADACHE [None]
